FAERS Safety Report 9770730 (Version 1)
Quarter: 2013Q4

REPORT INFORMATION
  Report Type: Spontaneous
  Country: DK (occurrence: DK)
  Receive Date: 20131218
  Receipt Date: 20131218
  Transmission Date: 20140711
  Serious: Yes (Hospitalization)
  Sender: FDA-Public Use
  Company Number: DK-WATSON-2013-22998

PATIENT
  Age: 71 Year
  Sex: Male
  Weight: 72 kg

DRUGS (11)
  1. SIMVASTATIN ACTAVIS [Suspect]
     Indication: HYPERCHOLESTEROLAEMIA
     Dosage: 80 MG, DAILY
     Route: 048
     Dates: end: 20131107
  2. AMLODIPIN ACTAVIS [Interacting]
     Indication: HYPERTENSION
     Dosage: 10 MG, DAILY
     Route: 048
  3. ALFACALCIDOL [Concomitant]
     Indication: CALCIUM METABOLISM DISORDER
     Dosage: UNK
     Route: 065
  4. ALLOPURINOL [Concomitant]
     Indication: GOUT
     Dosage: UNK
     Route: 048
  5. BICALUTAMID BLUEFISH [Concomitant]
     Indication: PROSTATE CANCER
     Dosage: UNK
     Route: 048
  6. CENTYL MED KALIUMKLORID [Concomitant]
     Indication: DIURETIC THERAPY
     Dosage: UNK
     Route: 048
  7. DOXAZOSIN [Concomitant]
     Indication: HYPERTENSION
     Dosage: UNK
     Route: 048
  8. FURIX [Concomitant]
     Indication: RENAL IMPAIRMENT
     Dosage: UNK
     Route: 065
  9. HJERTEMAGNYL                       /00228701/ [Concomitant]
     Indication: ATRIAL FIBRILLATION
     Dosage: UNK
     Route: 048
  10. LEVEMIR [Concomitant]
     Indication: DIABETES MELLITUS
     Dosage: UNK
     Route: 058
  11. NOVORAPID [Concomitant]
     Indication: DIABETES MELLITUS
     Dosage: UNK
     Route: 065

REACTIONS (4)
  - Myopathy [Recovered/Resolved]
  - Muscular weakness [Unknown]
  - Muscle atrophy [Unknown]
  - Drug interaction [Unknown]
